FAERS Safety Report 18592868 (Version 1)
Quarter: 2020Q4

REPORT INFORMATION
  Report Type: Spontaneous
  Country: US (occurrence: US)
  Receive Date: 20201209
  Receipt Date: 20201209
  Transmission Date: 20210114
  Serious: Yes (Hospitalization, Other)
  Sender: FDA-Public Use
  Company Number: US-CADILA HEALTHCARE LIMITED-US-ZYDUS-058852

PATIENT

DRUGS (5)
  1. PREDNISONE. [Suspect]
     Active Substance: PREDNISONE
     Indication: INTENTIONAL OVERDOSE
     Route: 065
  2. ENALAPRIL [Suspect]
     Active Substance: ENALAPRIL
     Indication: INTENTIONAL OVERDOSE
     Route: 065
  3. ALTERIL (MELATONIN, TRYPTOPHAN, L-) [Suspect]
     Active Substance: DIETARY SUPPLEMENT
     Indication: INTENTIONAL OVERDOSE
     Route: 065
  4. TIZANIDINE HYDROCHLORIDE. [Suspect]
     Active Substance: TIZANIDINE HYDROCHLORIDE
     Indication: INTENTIONAL OVERDOSE
     Route: 065
  5. HYDROCODONE [Suspect]
     Active Substance: HYDROCODONE
     Indication: INTENTIONAL OVERDOSE
     Route: 065

REACTIONS (12)
  - Generalised tonic-clonic seizure [Unknown]
  - Ventricular tachycardia [Recovered/Resolved]
  - Depressed level of consciousness [Recovered/Resolved]
  - Acidosis [Recovering/Resolving]
  - Rhabdomyolysis [Unknown]
  - Intentional overdose [Unknown]
  - Oliguria [Unknown]
  - Hepatitis [Unknown]
  - Cardiogenic shock [Unknown]
  - Acute hepatic failure [Recovered/Resolved]
  - Renal tubular necrosis [Unknown]
  - Stress cardiomyopathy [Recovered/Resolved]
